FAERS Safety Report 16005488 (Version 1)
Quarter: 2019Q1

REPORT INFORMATION
  Report Type: Report from Study
  Country: JP (occurrence: JP)
  Receive Date: 20190226
  Receipt Date: 20190226
  Transmission Date: 20190418
  Serious: Yes (Hospitalization)
  Sender: FDA-Public Use
  Company Number: JP-TEVA-2018-JP-902553

PATIENT
  Age: 45 Year
  Sex: Female
  Weight: 62 kg

DRUGS (18)
  1. TAKEPRON [Concomitant]
     Active Substance: LANSOPRAZOLE
     Route: 065
  2. AZANIN [Concomitant]
     Active Substance: AZATHIOPRINE
     Route: 065
  3. L CARTIN FF [Concomitant]
     Active Substance: LEVOCARNITINE
     Route: 065
  4. MYSLEE [Concomitant]
     Active Substance: ZOLPIDEM TARTRATE
     Dates: start: 20170808
  5. GLATIRAMER ACETATE. [Suspect]
     Active Substance: GLATIRAMER ACETATE
     Indication: SECONDARY PROGRESSIVE MULTIPLE SCLEROSIS
     Dosage: 20 MILLIGRAM DAILY;
     Route: 058
     Dates: start: 20160620
  6. LIVALO [Concomitant]
     Active Substance: PITAVASTATIN CALCIUM
     Route: 065
     Dates: start: 20161122, end: 20170606
  7. FERRUM [Concomitant]
     Active Substance: FERROUS FUMARATE
     Route: 065
     Dates: start: 20170606
  8. PREDONINE [Concomitant]
     Active Substance: PREDNISOLONE
     Route: 065
  9. DEPAKENE-R [Concomitant]
     Active Substance: VALPROATE SODIUM
     Route: 065
     Dates: end: 20161108
  10. CLARITHROMYCIN. [Concomitant]
     Active Substance: CLARITHROMYCIN
     Route: 065
  11. AMITIZA [Concomitant]
     Active Substance: LUBIPROSTONE
     Route: 065
  12. RIVOTRIL [Concomitant]
     Active Substance: CLONAZEPAM
     Route: 065
  13. CYMBALTA [Concomitant]
     Active Substance: DULOXETINE HYDROCHLORIDE
     Route: 065
     Dates: end: 20161122
  14. KEISHIBUKURYOGAN [Concomitant]
     Active Substance: HERBALS
     Dates: end: 20170331
  15. HIBON [Concomitant]
     Active Substance: RIBOFLAVIN
  16. GASMOTIN [Concomitant]
     Active Substance: MOSAPRIDE CITRATE
     Route: 065
  17. LYRICA [Concomitant]
     Active Substance: PREGABALIN
     Route: 065
  18. TRAMCET [Concomitant]
     Active Substance: ACETAMINOPHEN\TRAMADOL
     Route: 065

REACTIONS (6)
  - Injection site pain [Recovering/Resolving]
  - Injection site pruritus [Recovering/Resolving]
  - Injection site pruritus [Recovering/Resolving]
  - Off label use [Unknown]
  - Haemorrhoids [Recovering/Resolving]
  - Injection site pain [Recovering/Resolving]

NARRATIVE: CASE EVENT DATE: 20160620
